FAERS Safety Report 20198787 (Version 2)
Quarter: 2021Q4

REPORT INFORMATION
  Report Type: Spontaneous
  Country: PL (occurrence: PL)
  Receive Date: 20211217
  Receipt Date: 20211221
  Transmission Date: 20220304
  Serious: Yes (Death, Hospitalization)
  Sender: FDA-Public Use
  Company Number: PL-JNJFOC-20211041869

PATIENT
  Age: 31 Year
  Sex: Female

DRUGS (3)
  1. SILDENAFIL [Suspect]
     Active Substance: SILDENAFIL
     Indication: Pulmonary arterial hypertension
     Dosage: 60 MILLIGRAM, QD
     Route: 065
     Dates: start: 20210713
  2. MACITENTAN [Suspect]
     Active Substance: MACITENTAN
     Indication: Pulmonary arterial hypertension
     Dosage: 10 MILLIGRAM, QD
     Route: 048
     Dates: start: 20210709
  3. VELETRI [Suspect]
     Active Substance: EPOPROSTENOL
     Indication: Pulmonary arterial hypertension
     Dosage: WITH AN ESCALATION BY 1.0 NG/KG/MIN EVERY 12H
     Route: 042
     Dates: start: 20210708

REACTIONS (3)
  - Pyrexia [Fatal]
  - Pulmonary arterial hypertension [Fatal]
  - Device leakage [Fatal]

NARRATIVE: CASE EVENT DATE: 20210803
